FAERS Safety Report 6621615-6 (Version None)
Quarter: 2010Q1

REPORT INFORMATION
  Report Type: 
  Country: None (occurrence: None)
  Receive Date: 20100309
  Receipt Date: 20100223
  Transmission Date: 20100710
  Serious: Yes (Hospitalization)
  Sender: FDA-Public Use
  Company Number: SE-MEDIMMUNE-MEDI-0010646

PATIENT
  Sex: Male

DRUGS (3)
  1. SYNAGIS [Suspect]
     Dates: start: 20091102, end: 20091102
  2. SYNAGIS [Suspect]
     Dates: end: 20100114
  3. PANDEMRIX [Concomitant]
     Dates: start: 20100114, end: 20100114

REACTIONS (1)
  - PNEUMONIA [None]
